FAERS Safety Report 23014884 (Version 5)
Quarter: 2023Q4

REPORT INFORMATION
  Report Type: Report from Study
  Country: US (occurrence: None)
  Receive Date: 20231002
  Receipt Date: 20231120
  Transmission Date: 20240110
  Serious: Yes (Other)
  Sender: FDA-Public Use
  Company Number: US-ROCHE-3408551

PATIENT
  Age: 26 Year
  Sex: Male
  Weight: 64 kg

DRUGS (12)
  1. RANIBIZUMAB [Suspect]
     Active Substance: RANIBIZUMAB
     Indication: Diabetic retinopathy
     Dosage: DOSE OF STUDY DRUG FIRST ADMINISTERED 10 MG/ML?DOSE LAST STUDY DRUG ADMIN PRIOR AE/SAE 100 MG/ML?STA
     Route: 050
     Dates: start: 20210608
  2. RANIBIZUMAB [Suspect]
     Active Substance: RANIBIZUMAB
  3. RANIBIZUMAB [Suspect]
     Active Substance: RANIBIZUMAB
  4. RANIBIZUMAB [Suspect]
     Active Substance: RANIBIZUMAB
  5. RANIBIZUMAB [Suspect]
     Active Substance: RANIBIZUMAB
     Dosage: DATE OF MOST RECENT DOSE PRIOR TO DEVICE DEFICIENCY-29-JUN-2021, 16/AUG/2023, MOST RECENT DOSE OF ST
     Route: 050
  6. RANIBIZUMAB [Suspect]
     Active Substance: RANIBIZUMAB
  7. RANIBIZUMAB [Suspect]
     Active Substance: RANIBIZUMAB
  8. RANIBIZUMAB [Suspect]
     Active Substance: RANIBIZUMAB
  9. RANIBIZUMAB [Concomitant]
     Active Substance: RANIBIZUMAB
     Dosage: 6 MG/ML, DATE OF MOST RECENT DOSE PRIOR TO DEVICE DEFICIENCY-04-AUG-2023
     Route: 050
     Dates: start: 20210629
  10. NOVOLOG [Concomitant]
     Active Substance: INSULIN ASPART
     Route: 058
     Dates: start: 1998
  11. OFLOXACIN [Concomitant]
     Active Substance: OFLOXACIN
     Route: 047
     Dates: start: 20230918, end: 20230918
  12. OFLOXACIN [Concomitant]
     Active Substance: OFLOXACIN
     Route: 047

REACTIONS (3)
  - Device issue [Unknown]
  - Incorrect route of product administration [Unknown]
  - No adverse event [Unknown]

NARRATIVE: CASE EVENT DATE: 20230804
